FAERS Safety Report 24035741 (Version 1)
Quarter: 2024Q3

REPORT INFORMATION
  Report Type: Other
  Country: CA (occurrence: CA)
  Receive Date: 20240701
  Receipt Date: 20240701
  Transmission Date: 20241017
  Serious: Yes (Other)
  Sender: BIOCON
  Company Number: CA-BIOCON BIOLOGICS LIMITED-BBL2024004732

PATIENT

DRUGS (1)
  1. HULIO [Suspect]
     Active Substance: ADALIMUMAB-FKJP
     Indication: Hidradenitis
     Dosage: 40 MILLIGRAM, QW, SOLUTION
     Route: 065

REACTIONS (5)
  - Illness [Unknown]
  - Chills [Unknown]
  - Rash [Unknown]
  - Vomiting [Unknown]
  - Influenza [Unknown]
